FAERS Safety Report 7040837-6 (Version None)
Quarter: 2010Q3

REPORT INFORMATION
  Report Type: 
  Country: None (occurrence: None)
  Receive Date: 20100929
  Receipt Date: 20100617
  Transmission Date: 20110219
  Serious: No
  Sender: FDA-Public Use
  Company Number: US-WYE-H15199710

PATIENT
  Age: 56 Year
  Sex: Male
  Weight: 92.62 kg

DRUGS (7)
  1. PRISTIQ [Suspect]
     Indication: DEPRESSION
     Dosage: SEE IMAGE
     Dates: start: 20080101, end: 20100101
  2. PRISTIQ [Suspect]
     Indication: STRESS
     Dosage: SEE IMAGE
     Dates: start: 20080101, end: 20100101
  3. PRISTIQ [Suspect]
     Indication: DEPRESSION
     Dosage: SEE IMAGE
     Dates: end: 20100101
  4. PRISTIQ [Suspect]
     Indication: STRESS
     Dosage: SEE IMAGE
     Dates: end: 20100101
  5. PRISTIQ [Suspect]
     Indication: DEPRESSION
     Dosage: SEE IMAGE
     Dates: start: 20100101, end: 20100424
  6. PRISTIQ [Suspect]
     Indication: STRESS
     Dosage: SEE IMAGE
     Dates: start: 20100101, end: 20100424
  7. BUPROPION HCL [Concomitant]

REACTIONS (4)
  - DRUG WITHDRAWAL SYNDROME [None]
  - DYSPHEMIA [None]
  - PARAESTHESIA [None]
  - UNEVALUABLE EVENT [None]
